FAERS Safety Report 7380877-0 (Version None)
Quarter: 2011Q1

REPORT INFORMATION
  Report Type: 
  Country: None (occurrence: None)
  Receive Date: 20110329
  Receipt Date: 20110315
  Transmission Date: 20110831
  Serious: Yes (Other)
  Sender: FDA-Public Use
  Company Number: PHHY2011BR16569

PATIENT
  Sex: Female

DRUGS (4)
  1. EXELON [Suspect]
     Dosage: 9MG/5CM2
     Route: 062
  2. EXELON [Suspect]
     Indication: DEMENTIA ALZHEIMER'S TYPE
     Dosage: 13.3 MG, QD
     Route: 062
  3. EXELON [Suspect]
     Dosage: 9MG/5CM2
     Route: 062
  4. EXELON [Suspect]
     Dosage: 27MG/15CM2
     Route: 062

REACTIONS (11)
  - LIVER DISORDER [None]
  - ABDOMINAL PAIN [None]
  - FEEDING DISORDER [None]
  - MEMORY IMPAIRMENT [None]
  - POISONING [None]
  - VOMITING [None]
  - NAUSEA [None]
  - DIARRHOEA [None]
  - WEIGHT DECREASED [None]
  - CONFUSIONAL STATE [None]
  - BLOOD PRESSURE INCREASED [None]
